FAERS Safety Report 19953570 (Version 2)
Quarter: 2021Q4

REPORT INFORMATION
  Report Type: Spontaneous
  Country: FR (occurrence: FR)
  Receive Date: 20211013
  Receipt Date: 20211129
  Transmission Date: 20220303
  Serious: Yes (Hospitalization, Disabling, Other)
  Sender: FDA-Public Use
  Company Number: FR-SA-SAC20210429000276

PATIENT
  Age: 48 Year
  Sex: Male

DRUGS (7)
  1. METHOTREXATE [Suspect]
     Active Substance: METHOTREXATE
     Indication: Systemic lupus erythematosus
     Dosage: UNK
     Dates: start: 20170629
  2. TRANDATE [Suspect]
     Active Substance: LABETALOL HYDROCHLORIDE
     Indication: Hypertension
     Dosage: UNK
     Dates: start: 2017
  3. CHLOROQUINE [Suspect]
     Active Substance: CHLOROQUINE
     Indication: Systemic lupus erythematosus
     Dosage: 2 DF, QD
     Route: 048
     Dates: start: 201707, end: 20200211
  4. CHLOROQUINE [Suspect]
     Active Substance: CHLOROQUINE
     Indication: Sjogren^s syndrome
     Dosage: 100 MILLIGRAM, BID (100 MG, BID)
     Route: 048
  5. PLAQUENIL [Suspect]
     Active Substance: HYDROXYCHLOROQUINE SULFATE
     Indication: Product used for unknown indication
     Dosage: UNK
     Dates: start: 2017, end: 2017
  6. INEXIUM                            /01479303/ [Concomitant]
     Dosage: UNK
  7. MOVICOL                            /01749801/ [Concomitant]
     Dosage: UNK

REACTIONS (36)
  - Diarrhoea [Unknown]
  - Muscle spasms [Unknown]
  - Retinal injury [Unknown]
  - Eye naevus [Unknown]
  - Condition aggravated [Unknown]
  - Anxiety [Unknown]
  - Impaired driving ability [Unknown]
  - Maculopathy [Unknown]
  - Visual impairment [Unknown]
  - Retinopathy [Unknown]
  - Poisoning [Unknown]
  - Melanocytic naevus [Unknown]
  - Overlap syndrome [Unknown]
  - Arthralgia [Recovered/Resolved]
  - Rash [Unknown]
  - Episcleritis [Unknown]
  - Alopecia [Unknown]
  - Vision blurred [Unknown]
  - Drug intolerance [Unknown]
  - Drug hypersensitivity [Unknown]
  - Abdominal pain [Unknown]
  - Visual field defect [Unknown]
  - Vomiting [Unknown]
  - Nausea [Unknown]
  - Constipation [Unknown]
  - Skin lesion [Recovering/Resolving]
  - Hypertension [Unknown]
  - Fatigue [Unknown]
  - Ocular hyperaemia [Unknown]
  - Hypergammaglobulinaemia [Unknown]
  - Inflammatory pain [Unknown]
  - Asthenia [Unknown]
  - Photosensitivity reaction [Unknown]
  - Dry mouth [Unknown]
  - Arthritis [Unknown]
  - Overdose [Unknown]

NARRATIVE: CASE EVENT DATE: 20190916
